FAERS Safety Report 8480218-1 (Version None)
Quarter: 2012Q2

REPORT INFORMATION
  Report Type: 
  Country: None (occurrence: None)
  Receive Date: 20120629
  Receipt Date: 20120615
  Transmission Date: 20120825
  Serious: Yes (Hospitalization, Other)
  Sender: FDA-Public Use
  Company Number: CHPA2012US013059

PATIENT
  Age: 60 Year
  Sex: Female

DRUGS (1)
  1. THERAPEUTIC MINERAL ICE [Suspect]
     Indication: NECK PAIN
     Dosage: UNK, BID
     Route: 061
     Dates: start: 20110901, end: 20110901

REACTIONS (21)
  - PRURITUS [None]
  - DIZZINESS [None]
  - VOMITING [None]
  - BRONCHOPNEUMONIA [None]
  - DYSGEUSIA [None]
  - GINGIVAL RECESSION [None]
  - STICKY SKIN [None]
  - DRUG ADMINISTERED AT INAPPROPRIATE SITE [None]
  - BALANCE DISORDER [None]
  - LIP DRY [None]
  - HYPERHIDROSIS [None]
  - OCULAR DISCOMFORT [None]
  - BRONCHITIS [None]
  - HYPERTENSION [None]
  - SINUS CONGESTION [None]
  - UPPER LIMB FRACTURE [None]
  - FOREIGN BODY [None]
  - SEBORRHOEA [None]
  - FEELING ABNORMAL [None]
  - GAIT DISTURBANCE [None]
  - CHILLS [None]
